FAERS Safety Report 23481202 (Version 1)
Quarter: 2024Q1

REPORT INFORMATION
  Report Type: Spontaneous
  Country: US (occurrence: None)
  Receive Date: 20240202
  Receipt Date: 20240202
  Transmission Date: 20240410
  Serious: Yes (Hospitalization, Disabling)
  Sender: FDA-Public Use
  Company Number: None

PATIENT
  Age: 40 Year
  Sex: Female
  Weight: 65.25 kg

DRUGS (3)
  1. ALLERGY RELIEF DIPHENHYDRAMINE HCL 25 MG ANTIHISTAMINE [Suspect]
     Active Substance: DIPHENHYDRAMINE HYDROCHLORIDE
     Indication: Multiple allergies
     Dosage: 1 TABLET EVERY 4 HOURS ORAL?
     Route: 048
     Dates: start: 20240119, end: 20240129
  2. ALLERGY RELIEF DIPHENHYDRAMINE HCL 25 MG ANTIHISTAMINE [Suspect]
     Active Substance: DIPHENHYDRAMINE HYDROCHLORIDE
     Indication: Drainage
  3. MAGNESIUM [Concomitant]
     Active Substance: MAGNESIUM

REACTIONS (4)
  - Dizziness [None]
  - Disorientation [None]
  - Dysstasia [None]
  - Feeling drunk [None]

NARRATIVE: CASE EVENT DATE: 20240131
